FAERS Safety Report 9781857 (Version 1)
Quarter: 2013Q4

REPORT INFORMATION
  Report Type: Report from Study
  Country: LT (occurrence: LT)
  Receive Date: 20131225
  Receipt Date: 20131225
  Transmission Date: 20140711
  Serious: Yes (Hospitalization)
  Sender: FDA-Public Use
  Company Number: LT-ROCHE-1322153

PATIENT
  Age: 71 Year
  Sex: Female

DRUGS (5)
  1. RITUXIMAB [Suspect]
     Indication: CHRONIC LYMPHOCYTIC LEUKAEMIA
     Dosage: 50-150-1600MG 1-3 DAY
     Route: 042
  2. METHYLPREDNISOLONE [Suspect]
     Indication: CHRONIC LYMPHOCYTIC LEUKAEMIA
     Dosage: 1-3 D
     Route: 042
  3. BETALOC ZOK [Concomitant]
     Route: 065
  4. PHYSIOTENS [Concomitant]
     Route: 065
  5. METFORAL [Concomitant]
     Route: 065

REACTIONS (1)
  - Renal impairment [Recovered/Resolved]
